FAERS Safety Report 9427440 (Version 1)
Quarter: 2013Q3

REPORT INFORMATION
  Report Type: Report from Study
  Country: US (occurrence: US)
  Receive Date: 20130730
  Receipt Date: 20130730
  Transmission Date: 20140515
  Serious: No
  Sender: FDA-Public Use
  Company Number: US-ABBOTT-12P-163-0975466-00

PATIENT
  Age: 63 Year
  Sex: Male
  Weight: 152.09 kg

DRUGS (40)
  1. NIASPAN (COATED) 500MG [Suspect]
     Indication: BLOOD TRIGLYCERIDES INCREASED
     Dosage: AT BEDTIME
     Route: 048
     Dates: start: 20120823
  2. NIASPAN (COATED) 500MG [Suspect]
     Indication: LOW DENSITY LIPOPROTEIN INCREASED
  3. NIASPAN (COATED) 500MG [Suspect]
     Indication: HIGH DENSITY LIPOPROTEIN DECREASED
  4. ADVAIR [Concomitant]
     Indication: CHRONIC OBSTRUCTIVE PULMONARY DISEASE
  5. ALBUTEROL [Concomitant]
     Indication: ASTHMA
  6. ANDROGEL [Concomitant]
     Indication: BLOOD TESTOSTERONE DECREASED
  7. BALSALAZIDE [Concomitant]
     Indication: CROHN^S DISEASE
  8. CALTRATE D [Concomitant]
     Indication: SUPPLEMENTATION THERAPY
  9. PROPIONATE [Concomitant]
     Indication: SKIN DISORDER
  10. CRESTOR [Concomitant]
     Indication: BLOOD TRIGLYCERIDES
  11. DIOVAN [Concomitant]
     Indication: CARDIAC DISORDER
  12. CYMBALTA [Concomitant]
     Indication: PAIN
  13. FENOFIBRATE [Concomitant]
     Indication: PRODUCT USED FOR UNKNOWN INDICATION
  14. FEXOFENADINE [Concomitant]
     Indication: SINUSITIS
  15. FLUTICANOSE [Concomitant]
     Indication: SINUSITIS
  16. LASIX [Concomitant]
     Indication: CARDIAC FAILURE CONGESTIVE
  17. ADALIMUMAB [Concomitant]
     Indication: CROHN^S DISEASE
  18. HYOSCYAMINE [Concomitant]
     Indication: CROHN^S DISEASE
  19. LANTUS [Concomitant]
     Indication: DIABETES MELLITUS
  20. LORTAB [Concomitant]
     Indication: PAIN
  21. LOVAZA [Concomitant]
     Indication: BLOOD CHOLESTEROL
  22. LOVAZA [Concomitant]
     Indication: BLOOD TRIGLYCERIDES
  23. MAGNESIUM OXIDE [Concomitant]
     Indication: NEPHROPATHY
  24. NITROQUICK [Concomitant]
     Indication: CHEST PAIN
  25. NORTRIPTYLINE [Concomitant]
     Indication: INSOMNIA
  26. NOVOLOG [Concomitant]
     Indication: DIABETES MELLITUS
  27. OMNARIS [Concomitant]
     Indication: SINUSITIS
  28. OXYMETAZOLINE [Concomitant]
     Indication: SINUSITIS
  29. PANTOPRAZOLE SODIUM [Concomitant]
     Indication: CROHN^S DISEASE
  30. POTASSIUM CHLORIDE [Concomitant]
     Indication: SUPPLEMENTATION THERAPY
  31. PROMETHAZINE [Concomitant]
     Indication: NAUSEA
  32. REQUIP [Concomitant]
     Indication: MUSCLE TWITCHING
  33. SPIRONOLACTONE [Concomitant]
     Indication: CARDIAC FAILURE CONGESTIVE
  34. SPIRIVA [Concomitant]
     Indication: CHRONIC OBSTRUCTIVE PULMONARY DISEASE
  35. SYMLINPEN [Concomitant]
     Indication: DIABETES MELLITUS
  36. TIZANIDINE [Concomitant]
     Indication: MUSCLE SPASMS
  37. TRIAMCINOLONE [Concomitant]
     Indication: SKIN DISORDER
  38. VITAMIN D [Concomitant]
     Indication: SUPPLEMENTATION THERAPY
  39. BIOTINE [Concomitant]
     Indication: PRODUCT USED FOR UNKNOWN INDICATION
  40. ASPIRIN [Concomitant]
     Indication: PRODUCT USED FOR UNKNOWN INDICATION

REACTIONS (7)
  - Flushing [Recovered/Resolved]
  - Feeling hot [Recovered/Resolved]
  - Erythema [Recovered/Resolved]
  - Pruritus [Recovered/Resolved]
  - Chills [Not Recovered/Not Resolved]
  - Palpitations [Recovered/Resolved]
  - Blood glucose increased [Not Recovered/Not Resolved]
